FAERS Safety Report 8813702 (Version 4)
Quarter: 2013Q2

REPORT INFORMATION
  Report Type: Spontaneous
  Country: DE (occurrence: DE)
  Receive Date: 20120928
  Receipt Date: 20130604
  Transmission Date: 20140414
  Serious: Yes (Hospitalization)
  Sender: FDA-Public Use
  Company Number: DE-AMGEN-DEUSP2012060865

PATIENT
  Age: 58 Year
  Sex: Female

DRUGS (9)
  1. ENBREL [Suspect]
     Indication: PSORIASIS
     Dosage: 50 MG, WEEKLY
     Route: 058
     Dates: start: 201102
  2. ENBREL [Suspect]
     Indication: PSORIATIC ARTHROPATHY
  3. DIOVANE [Concomitant]
     Dosage: 160, 0.5X/DAY
  4. PANTOZOL                           /01263204/ [Concomitant]
     Dosage: 20 UNK, BID
  5. ALDACTONE                          /00006201/ [Concomitant]
     Dosage: 25 UNK, 1X/DAY
  6. CARVEDILOL [Concomitant]
     Dosage: 6.25 UNK, 1X/DAY
  7. DECORTIN [Concomitant]
     Dosage: 40 MG, 1X/DAY
     Dates: start: 20121002
  8. TILIDINE [Concomitant]
     Dosage: 50 MG, 2X/DAY
  9. DICLOFENAC [Concomitant]
     Dosage: UNK
     Route: 048

REACTIONS (1)
  - Pyoderma gangrenosum [Recovering/Resolving]
